FAERS Safety Report 17369943 (Version 2)
Quarter: 2020Q2

REPORT INFORMATION
  Report Type: Report from Study
  Country: US (occurrence: US)
  Receive Date: 20200205
  Receipt Date: 20200402
  Transmission Date: 20200713
  Serious: Yes (Hospitalization)
  Sender: FDA-Public Use
  Company Number: US-TAIHO ONCOLOGY  INC-EU-2020-00265

PATIENT
  Age: 66 Year
  Sex: Male

DRUGS (17)
  1. FLUTICASONE POW PROPIONA [Concomitant]
     Dates: start: 20191120
  2. CODEINE/GG [Concomitant]
     Dosage: SOLUTION :10-100/5
     Dates: start: 20191120
  3. BENZONATATE. [Concomitant]
     Active Substance: BENZONATATE
     Dates: start: 20191120
  4. ZOLPIDEM [Concomitant]
     Active Substance: ZOLPIDEM TARTRATE
     Dates: start: 20191120
  5. TAMSULOSIN [Concomitant]
     Active Substance: TAMSULOSIN
     Dosage: 0.4 MG
     Dates: start: 20191120
  6. LONSURF [Suspect]
     Active Substance: TIPIRACIL HYDROCHLORIDE\TRIFLURIDINE
     Indication: COLON CANCER
     Dosage: CYCLE NUMBER UNKNOWN
     Route: 048
     Dates: start: 20191030
  7. DIPHENHYDRAM [Concomitant]
     Dates: start: 20191120
  8. ELIQUIS [Concomitant]
     Active Substance: APIXABAN
     Dates: start: 20191120
  9. AMLODIPINE [Concomitant]
     Active Substance: AMLODIPINE BESYLATE
     Dates: start: 20191120
  10. CLOTRIM/BETA CRE DIPROP [Concomitant]
     Dates: start: 20191120
  11. ERGOCALCIFER [Concomitant]
     Dates: start: 20191120
  12. JANUVIA [Concomitant]
     Active Substance: SITAGLIPTIN PHOSPHATE
     Dates: start: 20191120
  13. ONDANSETRON [Concomitant]
     Active Substance: ONDANSETRON
     Dosage: 8 MG
     Dates: start: 20191120
  14. TRAMADOL HCL [Concomitant]
     Active Substance: TRAMADOL HYDROCHLORIDE
     Dates: start: 20191120
  15. CODEINE/APAP [Concomitant]
     Active Substance: ACETAMINOPHEN\CODEINE PHOSPHATE
     Dosage: 30-300 MG
     Dates: start: 20191120
  16. GABAPENTIN. [Concomitant]
     Active Substance: GABAPENTIN
     Dates: start: 20191120
  17. PROCHLORPER [Concomitant]
     Dosage: 10 MG
     Dates: start: 20191120

REACTIONS (3)
  - Cytopenia [Not Recovered/Not Resolved]
  - Faecaloma [Unknown]
  - Pathological fracture [Unknown]

NARRATIVE: CASE EVENT DATE: 20200312
